FAERS Safety Report 24777266 (Version 2)
Quarter: 2025Q3

REPORT INFORMATION
  Report Type: Spontaneous
  Country: US (occurrence: US)
  Receive Date: 20241226
  Receipt Date: 20250707
  Transmission Date: 20251020
  Serious: No
  Sender: DAIICHI
  Company Number: US-DAIICHI SANKYO, INC.-DS-2024-116896-USAA

PATIENT
  Sex: Female

DRUGS (1)
  1. TURALIO [Suspect]
     Active Substance: PEXIDARTINIB HYDROCHLORIDE
     Indication: Giant cell tumour of tendon sheath
     Dosage: 250 MG, BID
     Route: 048
     Dates: start: 202304

REACTIONS (3)
  - Ill-defined disorder [Unknown]
  - Insurance issue [Unknown]
  - Adverse drug reaction [Unknown]
